FAERS Safety Report 10563589 (Version 1)
Quarter: 2014Q4

REPORT INFORMATION
  Report Type: Spontaneous
  Country: US (occurrence: US)
  Receive Date: 20141104
  Receipt Date: 20141104
  Transmission Date: 20150529
  Serious: No
  Sender: FDA-Public Use
  Company Number: US-009507513-1410USA012288

PATIENT

DRUGS (2)
  1. CLARITIN [Suspect]
     Active Substance: LORATADINE
     Indication: SNEEZING
     Dosage: UNK, UNKNOWN
     Route: 048
  2. CLARITIN [Suspect]
     Active Substance: LORATADINE
     Indication: PARAESTHESIA

REACTIONS (1)
  - Drug ineffective [Unknown]
